FAERS Safety Report 8339640-6 (Version None)
Quarter: 2012Q2

REPORT INFORMATION
  Report Type: 
  Country: None (occurrence: None)
  Receive Date: 20120507
  Receipt Date: 20120503
  Transmission Date: 20120825
  Serious: Yes (Death, Hospitalization, Other)
  Sender: FDA-Public Use
  Company Number: PHEH2005US10673

PATIENT
  Sex: Female
  Weight: 63.492 kg

DRUGS (19)
  1. AREDIA [Suspect]
     Indication: METASTASES TO BONE
     Dosage: 90 MG, QMO
     Route: 042
     Dates: start: 20010605, end: 20020411
  2. POTASSIUM CHLORIDE [Concomitant]
  3. AMBIEN [Concomitant]
  4. VINCRISTINE + ADRIAMYCIN + DEXAMETHASONE [Concomitant]
     Indication: LUNG NEOPLASM MALIGNANT
  5. ZOFRAN [Concomitant]
     Indication: PROPHYLAXIS
  6. NEULASTA [Concomitant]
     Indication: ANAEMIA
     Dosage: 6 MG, UNK
     Dates: start: 20021004
  7. NEXIUM [Concomitant]
     Indication: GASTROOESOPHAGEAL REFLUX DISEASE
     Route: 048
  8. ARIMIDEX [Concomitant]
     Indication: BREAST CANCER
     Dosage: 1 MG, QD
     Route: 048
     Dates: start: 19980601
  9. FLUOROURACIL [Concomitant]
     Indication: CHEMOTHERAPY
     Dosage: 650 MG, UNK
     Route: 042
     Dates: start: 20020515, end: 20021101
  10. ZOCOR [Concomitant]
  11. LEUCOVORIN CALCIUM [Concomitant]
     Indication: CHEMOTHERAPY
     Dosage: 300 MG, UNK
     Route: 042
     Dates: start: 20020515, end: 20021101
  12. TAXOTERE [Concomitant]
     Indication: CHEMOTHERAPY
     Dosage: 60 MG, QMO
     Route: 042
     Dates: start: 20020822, end: 20050218
  13. LIPITOR [Concomitant]
     Indication: HYPERCHOLESTEROLAEMIA
     Route: 048
  14. CALCIUM [Concomitant]
  15. ZOMETA [Suspect]
     Indication: METASTASES TO BONE
     Dosage: 4 MG, UNK
     Route: 042
     Dates: start: 20020515, end: 20041230
  16. XELODA [Concomitant]
     Indication: CHEMOTHERAPY
     Dosage: 200 MG, BID X 2 WKS THEN OFF 1 WK
     Route: 048
     Dates: start: 20030625, end: 20030822
  17. MITOXANTRONE [Concomitant]
     Indication: CHEMOTHERAPY
     Dosage: 22 MG, UNK
     Route: 042
     Dates: start: 20020515, end: 20021101
  18. PREVACID [Concomitant]
     Indication: GASTROOESOPHAGEAL REFLUX DISEASE
     Route: 048
  19. VALIUM [Concomitant]
     Route: 048

REACTIONS (62)
  - NEOPLASM PROGRESSION [None]
  - GINGIVAL ULCERATION [None]
  - PLEURAL EFFUSION [None]
  - ASPIRATION PLEURAL CAVITY [None]
  - PERIODONTAL DISEASE [None]
  - METASTASES TO CENTRAL NERVOUS SYSTEM [None]
  - RESPIRATORY FAILURE [None]
  - DYSPNOEA [None]
  - OEDEMA PERIPHERAL [None]
  - ANAEMIA [None]
  - BLINDNESS [None]
  - ABDOMINAL DISTENSION [None]
  - ELECTROCARDIOGRAM ABNORMAL [None]
  - CHRONIC OBSTRUCTIVE PULMONARY DISEASE [None]
  - MENTAL STATUS CHANGES [None]
  - METASTASES TO LIVER [None]
  - CHILLS [None]
  - INTERVERTEBRAL DISC DEGENERATION [None]
  - SINUSITIS [None]
  - BRUXISM [None]
  - DIARRHOEA [None]
  - VITREOUS FLOATERS [None]
  - RETINAL HAEMORRHAGE [None]
  - DEHYDRATION [None]
  - WHEEZING [None]
  - INTERVERTEBRAL DISC DISORDER [None]
  - PULMONARY HILUM MASS [None]
  - BONE DISORDER [None]
  - ARTHROPATHY [None]
  - IMPAIRED SELF-CARE [None]
  - FATIGUE [None]
  - THYROID NEOPLASM [None]
  - MIGRAINE [None]
  - CONFUSIONAL STATE [None]
  - HYPERTENSION [None]
  - HYPOKALAEMIA [None]
  - LYMPHADENOPATHY [None]
  - MOBILITY DECREASED [None]
  - COGNITIVE DISORDER [None]
  - BONE FISTULA [None]
  - SPINAL COLUMN STENOSIS [None]
  - BACK PAIN [None]
  - WEIGHT DECREASED [None]
  - OPTIC NEURITIS [None]
  - PERONEAL NERVE PALSY [None]
  - NEUROPATHY PERIPHERAL [None]
  - DISORIENTATION [None]
  - HYPOXIA [None]
  - ANXIETY [None]
  - NEOPLASM MALIGNANT [None]
  - GINGIVAL PAIN [None]
  - SCIATICA [None]
  - APHASIA [None]
  - ARTHRALGIA [None]
  - TRANSIENT ISCHAEMIC ATTACK [None]
  - OSTEONECROSIS OF JAW [None]
  - IMPAIRED HEALING [None]
  - COUGH [None]
  - VISION BLURRED [None]
  - HEADACHE [None]
  - LOOSE TOOTH [None]
  - CORONARY ARTERY DISEASE [None]
